FAERS Safety Report 8508593-X (Version None)
Quarter: 2012Q3

REPORT INFORMATION
  Report Type: 
  Country: None (occurrence: None)
  Receive Date: 20120713
  Receipt Date: 20120709
  Transmission Date: 20120928
  Serious: No
  Sender: FDA-Public Use
  Company Number: US-PFIZER INC-2012165197

PATIENT
  Sex: Male
  Weight: 102 kg

DRUGS (3)
  1. AMITRIPTYLINE HYDROCHLORIDE [Suspect]
     Indication: PERIPHERAL NERVE INJURY
     Dosage: 25MG DAILY
     Dates: start: 20120601, end: 20120622
  2. GABAPENTIN [Suspect]
     Indication: PERIPHERAL NERVE INJURY
     Dosage: 1200 MG, 3X/DAY
     Dates: start: 20110101, end: 20120501
  3. NORCO [Concomitant]
     Indication: MUSCULOSKELETAL PAIN
     Dosage: UNK, DAILY

REACTIONS (5)
  - SOMNOLENCE [None]
  - FEELING DRUNK [None]
  - FATIGUE [None]
  - FEELING ABNORMAL [None]
  - DRUG INEFFECTIVE [None]
